FAERS Safety Report 8943985 (Version 1)
Quarter: 2012Q4

REPORT INFORMATION
  Report Type: Spontaneous
  Country: US (occurrence: None)
  Receive Date: 20121205
  Receipt Date: 20121205
  Transmission Date: 20130627
  Serious: No
  Sender: FDA-Public Use
  Company Number: None

PATIENT
  Age: 68 Year
  Sex: Female
  Weight: 66.68 kg

DRUGS (4)
  1. METHYLPREDNISOLONE ACETATE [Suspect]
     Indication: LUMBAR SPINAL STENOSIS
     Dosage: 60mg PRN Epidural
     Route: 008
     Dates: start: 20120717, end: 20120926
  2. METHYLPREDNISOLONE ACETATE [Suspect]
     Indication: LUMBAR SPONDYLOSIS
     Dosage: 60mg PRN Epidural
     Route: 008
     Dates: start: 20120717, end: 20120926
  3. METHYLPREDNISOLONE ACETATE [Suspect]
     Indication: LUMBAR SPINAL STENOSIS
     Dosage: 20mg PRN other
     Route: 050
  4. METHYLPREDNISOLONE ACETATE [Suspect]
     Indication: LUMBAR SPONDYLOSIS
     Dosage: 20mg PRN other
     Route: 050

REACTIONS (3)
  - Dysuria [None]
  - Eye pruritus [None]
  - Eye irritation [None]
